FAERS Safety Report 7000525-9 (Version None)
Quarter: 2010Q3

REPORT INFORMATION
  Report Type: 
  Country: None (occurrence: None)
  Receive Date: 20100920
  Receipt Date: 20100527
  Transmission Date: 20110219
  Serious: Yes (Hospitalization, Other)
  Sender: FDA-Public Use
  Company Number: US-ASTRAZENECA-2006UW28167

PATIENT
  Age: 504 Month
  Sex: Male
  Weight: 110.2 kg

DRUGS (33)
  1. SEROQUEL [Suspect]
     Indication: PARANOIA
     Dosage: 100 MG AND 25 MG
     Route: 048
     Dates: start: 19990101, end: 20060101
  2. SEROQUEL [Suspect]
     Indication: ANXIETY
     Dosage: 100 MG AND 25 MG
     Route: 048
     Dates: start: 19990101, end: 20060101
  3. SEROQUEL [Suspect]
     Indication: DEPRESSION
     Dosage: 100 MG AND 25 MG
     Route: 048
     Dates: start: 19990101, end: 20060101
  4. SEROQUEL [Suspect]
     Route: 048
     Dates: start: 20000606
  5. SEROQUEL [Suspect]
     Route: 048
     Dates: start: 20000606
  6. SEROQUEL [Suspect]
     Route: 048
     Dates: start: 20000606
  7. SEROQUEL [Suspect]
     Route: 048
     Dates: start: 20000701
  8. SEROQUEL [Suspect]
     Route: 048
     Dates: start: 20000701
  9. SEROQUEL [Suspect]
     Route: 048
     Dates: start: 20000701
  10. SEROQUEL [Suspect]
     Route: 048
     Dates: start: 20010301
  11. SEROQUEL [Suspect]
     Route: 048
     Dates: start: 20010301
  12. SEROQUEL [Suspect]
     Route: 048
     Dates: start: 20010301
  13. SEROQUEL [Suspect]
     Route: 048
     Dates: start: 20010301
  14. SEROQUEL [Suspect]
     Route: 048
     Dates: start: 20010301
  15. SEROQUEL [Suspect]
     Route: 048
     Dates: start: 20010301
  16. SEROQUEL [Suspect]
     Route: 048
     Dates: start: 20050617
  17. SEROQUEL [Suspect]
     Route: 048
     Dates: start: 20050617
  18. SEROQUEL [Suspect]
     Route: 048
     Dates: start: 20050617
  19. SEROQUEL [Suspect]
     Route: 048
     Dates: start: 20061013
  20. SEROQUEL [Suspect]
     Route: 048
     Dates: start: 20061013
  21. SEROQUEL [Suspect]
     Route: 048
     Dates: start: 20061013
  22. SEROQUEL [Suspect]
     Route: 048
     Dates: start: 20061204
  23. SEROQUEL [Suspect]
     Route: 048
     Dates: start: 20061204
  24. SEROQUEL [Suspect]
     Route: 048
     Dates: start: 20061204
  25. STELAZINE [Concomitant]
     Dates: start: 19920101
  26. THORAZINE [Concomitant]
     Dates: start: 19920101
  27. TRAZODONE HCL [Concomitant]
     Dates: start: 19970101
  28. ZOLOFT [Concomitant]
     Dates: start: 20000101
  29. ZYPREXA [Concomitant]
  30. LORATADINE [Concomitant]
     Dates: start: 20050617
  31. LISINOPRIL [Concomitant]
     Dates: start: 20060711
  32. TRAMADOL [Concomitant]
     Dates: start: 20080818
  33. LOVASTATIN [Concomitant]
     Dates: start: 20080903

REACTIONS (3)
  - BLOOD CHOLESTEROL INCREASED [None]
  - DIABETIC KETOACIDOSIS [None]
  - TYPE 2 DIABETES MELLITUS [None]
